FAERS Safety Report 12936349 (Version 1)
Quarter: 2016Q4

REPORT INFORMATION
  Report Type: Spontaneous
  Country: US (occurrence: US)
  Receive Date: 20161113
  Receipt Date: 20161113
  Transmission Date: 20170207
  Serious: No
  Sender: FDA-Public Use
  Company Number: None

PATIENT
  Age: 42 Year
  Sex: Male
  Weight: 105.7 kg

DRUGS (3)
  1. LISINOPRIL. [Concomitant]
     Active Substance: LISINOPRIL
  2. BIPAP MACHINE [Concomitant]
  3. RISPERIDONE. [Suspect]
     Active Substance: RISPERIDONE
     Indication: THINKING ABNORMAL
     Dosage: QUANTITY:1 TABLET(S); AT BEDTIME; ORAL?
     Route: 048
     Dates: start: 20160616, end: 20160621

REACTIONS (3)
  - Vision blurred [None]
  - Headache [None]
  - Disorientation [None]

NARRATIVE: CASE EVENT DATE: 20160619
